FAERS Safety Report 6288724-5 (Version None)
Quarter: 2009Q3

REPORT INFORMATION
  Report Type: 
  Country: None (occurrence: None)
  Receive Date: 20090729
  Receipt Date: 20090717
  Transmission Date: 20100115
  Serious: Yes (Other)
  Sender: FDA-Public Use
  Company Number: PHEH2009US07684

PATIENT
  Sex: Female

DRUGS (2)
  1. ZOMETA [Suspect]
     Dosage: UNK, UNK
     Route: 065
     Dates: start: 20090625
  2. ARIMIDEX [Suspect]
     Dosage: UNK, UNK
     Route: 065
     Dates: start: 20090619

REACTIONS (3)
  - HYPOACUSIS [None]
  - TINNITUS [None]
  - VERTIGO [None]
